FAERS Safety Report 9375085 (Version 4)
Quarter: 2013Q3

REPORT INFORMATION
  Report Type: Spontaneous
  Country: US (occurrence: US)
  Receive Date: 20130628
  Receipt Date: 20130730
  Transmission Date: 20140515
  Serious: Yes (Other)
  Sender: FDA-Public Use
  Company Number: US-PFIZER INC-2013191972

PATIENT
  Age: 64 Year
  Sex: Female
  Weight: 81.63 kg

DRUGS (5)
  1. LYRICA [Suspect]
     Indication: FIBROMYALGIA
     Dosage: 75 MG, 4X/DAY
  2. LANTUS [Concomitant]
     Indication: DIABETES MELLITUS
     Dosage: 50MG IN THE MORNING AND 35MG IN THE EVENING
  3. NOVOLOG [Concomitant]
     Indication: DIABETES MELLITUS
     Dosage: UNK
  4. ATENOLOL [Concomitant]
     Indication: CARDIAC DISORDER
     Dosage: 25 MG, 3X/DAY
  5. NORCO [Concomitant]
     Indication: BACK DISORDER
     Dosage: (HYDROCODONE BITARTRATE 10 MG/PARACETAMOL 325MG) 5X/DAY

REACTIONS (13)
  - Carotid artery occlusion [Unknown]
  - Cardiac disorder [Unknown]
  - Atrioventricular block [Unknown]
  - Brain hypoxia [Unknown]
  - Drug withdrawal syndrome [Not Recovered/Not Resolved]
  - Pain [Not Recovered/Not Resolved]
  - Crying [Not Recovered/Not Resolved]
  - Headache [Not Recovered/Not Resolved]
  - Thinking abnormal [Unknown]
  - Drug tolerance [Unknown]
  - Dyspnoea [Unknown]
  - Cough [Unknown]
  - Drug ineffective [Unknown]
